FAERS Safety Report 6813474-3 (Version None)
Quarter: 2010Q3

REPORT INFORMATION
  Report Type: 
  Country: None (occurrence: None)
  Receive Date: 20100701
  Receipt Date: 20100624
  Transmission Date: 20110219
  Serious: Yes (Hospitalization, Other)
  Sender: FDA-Public Use
  Company Number: US-PFIZER INC-2010065438

PATIENT
  Sex: Male

DRUGS (2)
  1. GLUCOTROL [Suspect]
  2. GLUCOPHAGE [Suspect]

REACTIONS (5)
  - ABDOMINAL PAIN [None]
  - FALL [None]
  - GASTRIC ULCER [None]
  - GLAUCOMA [None]
  - HAEMORRHAGE [None]
